FAERS Safety Report 10733278 (Version 4)
Quarter: 2015Q1

REPORT INFORMATION
  Report Type: Report from Study
  Country: BE (occurrence: BE)
  Receive Date: 20150123
  Receipt Date: 20150220
  Transmission Date: 20150721
  Serious: Yes (Hospitalization)
  Sender: FDA-Public Use
  Company Number: BE-ABBVIE-14P-013-1265119-00

PATIENT
  Sex: Female

DRUGS (10)
  1. DUODOPA [Suspect]
     Active Substance: CARBIDOPA\LEVODOPA
     Dosage: AM DOSE=5ML, CD=2.7ML/H FOR 16HRS AND ED=1ML
     Route: 050
     Dates: start: 20141219, end: 20150119
  2. DUODOPA [Suspect]
     Active Substance: CARBIDOPA\LEVODOPA
     Dosage: AM DOSE=6ML, CD=2.9ML/H FOR 116HRS AND ED=1ML
     Route: 050
     Dates: start: 20140911, end: 20141219
  3. DUODOPA [Suspect]
     Active Substance: CARBIDOPA\LEVODOPA
     Dosage: AM DOSE= 5ML, CONTIN DOSE= 2.5ML/H DURING 16HRS, EXTRA DOSE= 1ML
     Route: 050
     Dates: start: 20150119
  4. DUODOPA [Suspect]
     Active Substance: CARBIDOPA\LEVODOPA
     Dosage: AM = 6.5 ML, CONTIN DOSE = 2.9 ML/H DURING 16H, EXTRA DOSE = 1 ML
     Route: 050
     Dates: start: 20140616, end: 20140911
  5. DUODOPA [Suspect]
     Active Substance: CARBIDOPA\LEVODOPA
     Dosage: AM = 6.5 ML, CONTIN DOSE = 2.7 ML/H DURING 16H, EXTRA DOSE = 1 ML
     Route: 050
     Dates: start: 20140613, end: 20140616
  6. ESCITALOPRAM [Concomitant]
     Active Substance: ESCITALOPRAM OXALATE
     Indication: PRODUCT USED FOR UNKNOWN INDICATION
  7. DUODOPA [Suspect]
     Active Substance: CARBIDOPA\LEVODOPA
     Indication: PARKINSON^S DISEASE
     Dosage: AM = 6.5 ML, CONTIN DOSE = 2.5 ML/H DURING 16H, EXTRA DOSE = 1 ML
     Route: 050
     Dates: start: 20140610, end: 20140613
  8. INDERAL [Concomitant]
     Active Substance: PROPRANOLOL HYDROCHLORIDE
     Indication: PRODUCT USED FOR UNKNOWN INDICATION
  9. INDERAL [Concomitant]
     Active Substance: PROPRANOLOL HYDROCHLORIDE
     Indication: PRODUCT USED FOR UNKNOWN INDICATION
  10. PROLOPA [Concomitant]
     Active Substance: BENSERAZIDE\LEVODOPA
     Indication: PRODUCT USED FOR UNKNOWN INDICATION
     Dosage: EMERGENCY MEDICATION/4 X 0.5 TABLET A DAY UP TO 4 X 0.75 TABLET A DAY

REACTIONS (11)
  - Mood swings [Recovering/Resolving]
  - Dyskinesia [Not Recovered/Not Resolved]
  - Fall [Unknown]
  - Back pain [Unknown]
  - Balance disorder [Unknown]
  - Stress [Unknown]
  - Depression [Recovering/Resolving]
  - Upper limb fracture [Unknown]
  - Osteoarthritis [Unknown]
  - Mobility decreased [Unknown]
  - Musculoskeletal pain [Unknown]
